FAERS Safety Report 4629621-8 (Version None)
Quarter: 2005Q1

REPORT INFORMATION
  Report Type: 
  Country: None (occurrence: None)
  Receive Date: 20050330
  Receipt Date: 20050315
  Transmission Date: 20050727
  Serious: Yes (Other)
  Sender: FDA-Public Use
  Company Number: THYM-10224

PATIENT
  Age: 60 Year
  Sex: Female
  Weight: 69.7 kg

DRUGS (11)
  1. THYMOGLOBULIN [Suspect]
     Indication: RENAL TRANSPLANT
     Dosage: 100 MG QD IV
     Route: 042
     Dates: start: 20030828, end: 20030829
  2. CELLCEPT [Concomitant]
  3. VALCYTE [Concomitant]
  4. METOPROLOL TARTRATE [Concomitant]
  5. ASPIRIN [Concomitant]
  6. PROGRAF [Concomitant]
  7. PROTONIX [Concomitant]
  8. ZOCOR [Concomitant]
  9. NYSTATIN [Concomitant]
  10. COLACE [Concomitant]
  11. PERCOCET [Concomitant]

REACTIONS (5)
  - EJECTION FRACTION DECREASED [None]
  - MYOCARDIAL INFARCTION [None]
  - POST PROCEDURAL COMPLICATION [None]
  - PULMONARY OEDEMA [None]
  - VENTRICULAR HYPERTROPHY [None]
